FAERS Safety Report 24680671 (Version 1)
Quarter: 2024Q4

REPORT INFORMATION
  Report Type: Spontaneous
  Country: US (occurrence: US)
  Receive Date: 20241129
  Receipt Date: 20241129
  Transmission Date: 20250115
  Serious: Yes (Other)
  Sender: NOVARTIS
  Company Number: US-002147023-NVSC2024US225203

PATIENT
  Age: 75 Year
  Sex: Male

DRUGS (3)
  1. LUTETIUM LU-177 VIPIVOTIDE TETRAXETAN [Suspect]
     Active Substance: LUTETIUM LU-177 VIPIVOTIDE TETRAXETAN
     Indication: Prostate cancer stage III
     Dosage: UNK UNK, QMO
     Route: 065
  2. ENZALUTAMIDE [Concomitant]
     Active Substance: ENZALUTAMIDE
     Indication: Prostate cancer stage III
     Dosage: UNK
     Route: 065
  3. DAROLUTAMIDE [Concomitant]
     Active Substance: DAROLUTAMIDE
     Indication: Prostate cancer stage III
     Dosage: UNK
     Route: 065

REACTIONS (3)
  - Renal-limited thrombotic microangiopathy [Not Recovered/Not Resolved]
  - Hypertension [Unknown]
  - Oedema peripheral [Unknown]
